FAERS Safety Report 16544194 (Version 4)
Quarter: 2021Q1

REPORT INFORMATION
  Report Type: Spontaneous
  Country: US (occurrence: US)
  Receive Date: 20190709
  Receipt Date: 20210202
  Transmission Date: 20210419
  Serious: No
  Sender: FDA-Public Use
  Company Number: US-PFIZER INC-2019291907

PATIENT
  Age: 49 Year
  Sex: Female
  Weight: 77.11 kg

DRUGS (1)
  1. CHANTIX [Suspect]
     Active Substance: VARENICLINE TARTRATE
     Indication: SMOKING CESSATION THERAPY
     Dosage: UNK (AS DIRECTED BY MOUTH)
     Route: 048
     Dates: start: 201812

REACTIONS (2)
  - Weight increased [Unknown]
  - Dyspnoea [Unknown]
